FAERS Safety Report 25351932 (Version 4)
Quarter: 2025Q3

REPORT INFORMATION
  Report Type: Spontaneous
  Country: US (occurrence: US)
  Receive Date: 20250523
  Receipt Date: 20250722
  Transmission Date: 20251020
  Serious: Yes (Other)
  Sender: AUROBINDO
  Company Number: US-AUROBINDO-AUR-APL-2025-026771

PATIENT
  Age: 39 Year
  Sex: Female
  Weight: 81.19 kg

DRUGS (1)
  1. ALPRAZOLAM [Suspect]
     Active Substance: ALPRAZOLAM
     Indication: Sleep disorder
     Dosage: UNK, ONCE A DAY [ONCE A DAY AT BEDTIME]
     Route: 048
     Dates: start: 202306

REACTIONS (6)
  - Angina pectoris [Unknown]
  - Hyperaesthesia [Unknown]
  - Feeling hot [Unknown]
  - Headache [Unknown]
  - Feeling abnormal [Unknown]
  - Product taste abnormal [Unknown]

NARRATIVE: CASE EVENT DATE: 20250508
